FAERS Safety Report 13114049 (Version 2)
Quarter: 2017Q1

REPORT INFORMATION
  Report Type: Report from Study
  Country: CO (occurrence: CO)
  Receive Date: 20170113
  Receipt Date: 20170224
  Transmission Date: 20170428
  Serious: Yes (Hospitalization, Other)
  Sender: FDA-Public Use
  Company Number: CO-ELI_LILLY_AND_COMPANY-CO201701001215

PATIENT
  Sex: Female
  Weight: 46 kg

DRUGS (6)
  1. LEVOTHYROXINE. [Concomitant]
     Active Substance: LEVOTHYROXINE
  2. ASPIRIN                            /00002701/ [Concomitant]
     Active Substance: ASPIRIN
  3. TERIPARATIDE [Suspect]
     Active Substance: TERIPARATIDE
     Indication: OSTEOPOROSIS
     Dosage: UNK, QD
     Route: 058
     Dates: end: 201610
  4. ATORVASTATIN [Concomitant]
     Active Substance: ATORVASTATIN
  5. OMEPRAZOLE. [Concomitant]
     Active Substance: OMEPRAZOLE
  6. LOSARTAN. [Concomitant]
     Active Substance: LOSARTAN

REACTIONS (10)
  - Haemoglobin decreased [Not Recovered/Not Resolved]
  - Asthenia [Not Recovered/Not Resolved]
  - Dizziness [Not Recovered/Not Resolved]
  - Hypersensitivity [Not Recovered/Not Resolved]
  - Nasopharyngitis [Not Recovered/Not Resolved]
  - Urticaria [Not Recovered/Not Resolved]
  - Bone pain [Not Recovered/Not Resolved]
  - Pruritus generalised [Unknown]
  - Weight decreased [Not Recovered/Not Resolved]
  - Blood pressure decreased [Not Recovered/Not Resolved]
